FAERS Safety Report 24815978 (Version 1)
Quarter: 2025Q1

REPORT INFORMATION
  Report Type: Spontaneous
  Country: US (occurrence: US)
  Receive Date: 20250107
  Receipt Date: 20250107
  Transmission Date: 20250408
  Serious: No
  Sender: PFIZER
  Company Number: US-PFIZER INC-PV202500000366

PATIENT
  Age: 48 Year
  Sex: Female

DRUGS (25)
  1. DEMEROL [Suspect]
     Active Substance: MEPERIDINE HYDROCHLORIDE
  2. CELEBREX [Suspect]
     Active Substance: CELECOXIB
  3. TYLENOL [Concomitant]
     Active Substance: ACETAMINOPHEN
  4. KETOSTIN [Concomitant]
  5. DICLOFENAC DIETHYLAMINE [Concomitant]
     Active Substance: DICLOFENAC DIETHYLAMINE
  6. EPIPEN [Concomitant]
     Active Substance: EPINEPHRINE
  7. DIFLUCAN [Concomitant]
     Active Substance: FLUCONAZOLE
  8. NEURONTIN [Concomitant]
     Active Substance: GABAPENTIN
  9. MOVANTIK [Concomitant]
     Active Substance: NALOXEGOL OXALATE
  10. NARCAN [Concomitant]
     Active Substance: NALOXONE HYDROCHLORIDE
  11. SENOKOT [Concomitant]
     Active Substance: SENNOSIDES
  12. DEXAMETHASONE [Concomitant]
     Active Substance: DEXAMETHASONE
  13. OMEPRAZOLE [Concomitant]
     Active Substance: OMEPRAZOLE
  14. ZANAFLEX [Concomitant]
     Active Substance: TIZANIDINE HYDROCHLORIDE
  15. ACETAMINOPHEN\TRAMADOL HYDROCHLORIDE [Concomitant]
     Active Substance: ACETAMINOPHEN\TRAMADOL HYDROCHLORIDE
  16. TRIMPEX TRIMETHOPRIM HYDROCHLORIDE [Concomitant]
     Active Substance: TRIMETHOPRIM HYDROCHLORIDE
  17. SIMETHICONE (DIMETHICONE) [Concomitant]
     Active Substance: DIMETHICONE
  18. LOTRISONE [Concomitant]
     Active Substance: BETAMETHASONE DIPROPIONATE\CLOTRIMAZOLE
  19. BENADRYL [Concomitant]
     Active Substance: DIPHENHYDRAMINE HYDROCHLORIDE
  20. LOVENOX [Concomitant]
     Active Substance: ENOXAPARIN SODIUM
  21. ZYRTEC [Concomitant]
     Active Substance: CETIRIZINE HYDROCHLORIDE
  22. BENZONATATE [Concomitant]
     Active Substance: BENZONATATE
  23. XOLAIR [Concomitant]
     Active Substance: OMALIZUMAB
  24. NORVASC [Concomitant]
     Active Substance: AMLODIPINE BESYLATE
  25. PREDNISONE [Concomitant]
     Active Substance: PREDNISONE

REACTIONS (1)
  - Urticaria [Unknown]
